FAERS Safety Report 6248463-3 (Version None)
Quarter: 2009Q2

REPORT INFORMATION
  Report Type: 
  Country: None (occurrence: None)
  Receive Date: 20090624
  Receipt Date: 20090624
  Transmission Date: 20091009
  Serious: No
  Sender: FDA-Public Use
  Company Number: None

PATIENT
  Age: 59 Year
  Sex: Female
  Weight: 52.1637 kg

DRUGS (1)
  1. LIPITOR [Suspect]
     Dosage: 1 DAILY
     Dates: start: 20090528, end: 20090530

REACTIONS (2)
  - DYSSTASIA [None]
  - PAIN [None]
